FAERS Safety Report 17809813 (Version 1)
Quarter: 2020Q2

REPORT INFORMATION
  Report Type: Spontaneous
  Country: US (occurrence: US)
  Receive Date: 20200520
  Receipt Date: 20200520
  Transmission Date: 20200714
  Serious: Yes (Hospitalization)
  Sender: FDA-Public Use
  Company Number: US-DAITOPHA-2020-US-000013

PATIENT
  Sex: 0

DRUGS (1)
  1. RILUZOLE. [Suspect]
     Active Substance: RILUZOLE
     Route: 048

REACTIONS (2)
  - Transient global amnesia [Recovered/Resolved]
  - Vomiting [Recovered/Resolved]
